FAERS Safety Report 19088784 (Version 2)
Quarter: 2021Q2

REPORT INFORMATION
  Report Type: Report from Study
  Country: US (occurrence: US)
  Receive Date: 20210403
  Receipt Date: 20210429
  Transmission Date: 20210717
  Serious: No
  Sender: FDA-Public Use
  Company Number: NVSC2021US074649

PATIENT
  Sex: Female

DRUGS (1)
  1. ENTRESTO [Suspect]
     Active Substance: SACUBITRIL\VALSARTAN
     Indication: CARDIAC FAILURE
     Dosage: 1 DF, BID (24/26MG)
     Route: 048
     Dates: start: 202102

REACTIONS (5)
  - Feeling abnormal [Recovering/Resolving]
  - Heart rate increased [Unknown]
  - Nervousness [Recovering/Resolving]
  - Throat clearing [Unknown]
  - Joint swelling [Recovered/Resolved]
